FAERS Safety Report 5101923-0 (Version None)
Quarter: 2006Q3

REPORT INFORMATION
  Report Type: 
  Country: None (occurrence: None)
  Receive Date: 20060907
  Receipt Date: 20060828
  Transmission Date: 20061208
  Serious: Yes (Other)
  Sender: FDA-Public Use
  Company Number: CHPA2006US08611

PATIENT
  Age: 44 Year
  Sex: Male
  Weight: 63.5 kg

DRUGS (1)
  1. EXCEDRIN EXTRA STRENGTH (NCH) (CAFFEINE CITRATE, ACETYLSALICYLIC ACID, [Suspect]
     Indication: MIGRAINE
     Dosage: 2 DF, BIW, ORAL
     Route: 048

REACTIONS (2)
  - DRUG ABUSER [None]
  - NO ADVERSE DRUG EFFECT [None]
